FAERS Safety Report 17673455 (Version 1)
Quarter: 2020Q2

REPORT INFORMATION
  Report Type: Spontaneous
  Country: US (occurrence: US)
  Receive Date: 20200416
  Receipt Date: 20200416
  Transmission Date: 20200713
  Serious: Yes (Other)
  Sender: FDA-Public Use
  Company Number: US-TEVA-2020-US-1222447

PATIENT
  Age: 87 Year
  Sex: Female

DRUGS (8)
  1. VALPROIC ACID. [Suspect]
     Active Substance: VALPROIC ACID
     Indication: CEREBRAL AMYLOID ANGIOPATHY
     Route: 065
  2. VERAPAMIL [Suspect]
     Active Substance: VERAPAMIL HYDROCHLORIDE
     Indication: CEREBRAL AMYLOID ANGIOPATHY
     Dosage: INITIAL DOSE NOT STATED. LATER, DOSE INCREASED
     Route: 065
  3. SIMVASTATIN. [Concomitant]
     Active Substance: SIMVASTATIN
     Route: 048
  4. LEVOTHYROXINE. [Concomitant]
     Active Substance: LEVOTHYROXINE
     Route: 065
  5. HALOPERIDOL. [Suspect]
     Active Substance: HALOPERIDOL
     Indication: CEREBRAL AMYLOID ANGIOPATHY
     Route: 065
  6. APIXABAN [Concomitant]
     Active Substance: APIXABAN
     Route: 065
  7. ACETAMINOPHEN. [Suspect]
     Active Substance: ACETAMINOPHEN
     Indication: HEADACHE
     Route: 065
  8. BROMFENAC [Concomitant]
     Active Substance: BROMFENAC SODIUM
     Dosage: BROMFENAC OCULAR SOLUTION.
     Route: 047

REACTIONS (4)
  - Drug ineffective [Unknown]
  - Hypotension [Unknown]
  - Fatigue [Unknown]
  - Bradycardia [Unknown]
